FAERS Safety Report 8075957-0 (Version None)
Quarter: 2012Q1

REPORT INFORMATION
  Report Type: 
  Country: None (occurrence: None)
  Receive Date: 20120127
  Receipt Date: 20110214
  Transmission Date: 20120608
  Serious: No
  Sender: FDA-Public Use
  Company Number: US-GLAXOSMITHKLINE-A0880847A

PATIENT
  Age: 26 Year
  Sex: Female
  Weight: 76.4 kg

DRUGS (5)
  1. FLAGYL [Concomitant]
     Dosage: 500MG TWICE PER DAY
     Dates: start: 20090812
  2. OXYCODONE HCL AND ACETAMINOPHEN [Concomitant]
  3. WELLBUTRIN [Suspect]
     Indication: EX-TOBACCO USER
     Dosage: 75MG PER DAY
     Route: 048
     Dates: start: 20071201
  4. MULTI-VITAMINS [Concomitant]
  5. TOPAMAX [Concomitant]
     Dosage: 25MG SEE DOSAGE TEXT
     Dates: start: 20090331

REACTIONS (6)
  - DIZZINESS [None]
  - MATERNAL EXPOSURE DURING PREGNANCY [None]
  - WEIGHT DECREASED [None]
  - LIVE BIRTH [None]
  - NAUSEA [None]
  - VOMITING [None]
